FAERS Safety Report 4858145-8 (Version None)
Quarter: 2005Q4

REPORT INFORMATION
  Report Type: 
  Country: None (occurrence: None)
  Receive Date: 20051219
  Receipt Date: 20050316
  Transmission Date: 20060501
  Serious: No
  Sender: FDA-Public Use
  Company Number: US-GLAXOSMITHKLINE-A0549966A

PATIENT
  Age: 50 Year
  Sex: Female

DRUGS (1)
  1. MEMBERS MARK NTS ORIGINAL, 21MG [Suspect]
     Dates: start: 20050315, end: 20050316

REACTIONS (1)
  - PAIN IN EXTREMITY [None]
